FAERS Safety Report 10056530 (Version 1)
Quarter: 2014Q2

REPORT INFORMATION
  Report Type: Spontaneous
  Country: US (occurrence: US)
  Receive Date: 20140403
  Receipt Date: 20140403
  Transmission Date: 20141212
  Serious: No
  Sender: FDA-Public Use
  Company Number: US-PFIZER INC-2014090329

PATIENT
  Age: 62 Year
  Sex: Male
  Weight: 81.63 kg

DRUGS (1)
  1. CLINDAMYCIN PHOSPHATE [Suspect]
     Indication: SEPSIS
     Dosage: UNK

REACTIONS (1)
  - Abdominal pain upper [Recovered/Resolved]
